FAERS Safety Report 6132078-1 (Version None)
Quarter: 2009Q1

REPORT INFORMATION
  Report Type: 
  Country: None (occurrence: None)
  Receive Date: 20090325
  Receipt Date: 20090318
  Transmission Date: 20090719
  Serious: Yes (Hospitalization, Congenital Anomaly)
  Sender: FDA-Public Use
  Company Number: A0679841A

PATIENT
  Sex: Male
  Weight: 3 kg

DRUGS (1)
  1. PAXIL [Suspect]
     Indication: DRUG USE FOR UNKNOWN INDICATION
     Route: 048

REACTIONS (7)
  - ATRIAL SEPTAL DEFECT [None]
  - DRUG EXPOSURE DURING PREGNANCY [None]
  - EBSTEIN'S ANOMALY [None]
  - FALLOT'S TETRALOGY [None]
  - LUNG DISORDER [None]
  - PATENT DUCTUS ARTERIOSUS [None]
  - VENTRICULAR SEPTAL DEFECT [None]
